FAERS Safety Report 4786698-7 (Version None)
Quarter: 2005Q4

REPORT INFORMATION
  Report Type: 
  Country: None (occurrence: None)
  Receive Date: 20051004
  Receipt Date: 20050921
  Transmission Date: 20060501
  Serious: Yes (Other)
  Sender: FDA-Public Use
  Company Number: IT-BOEHRINGER INGELHEIM PHARMACEUTICALS, INC.-2005-DE-03848GD

PATIENT
  Age: 32 Year
  Sex: Female

DRUGS (6)
  1. NEVIRAPINE [Suspect]
     Indication: HIV INFECTION
     Dates: start: 19980725, end: 19991218
  2. STAVUDINE [Suspect]
     Indication: HIV INFECTION
     Dates: start: 19971124, end: 20020926
  3. RITONAVIR [Suspect]
     Indication: HIV INFECTION
     Dates: start: 19980725, end: 19990515
  4. SAQUINAVIR [Suspect]
     Indication: HIV INFECTION
     Dates: start: 19980725, end: 19990515
  5. LAMIVUDINE [Suspect]
     Indication: HIV INFECTION
     Dates: start: 19990515, end: 19991218
  6. NELFINAVIR [Suspect]
     Indication: HIV INFECTION
     Dates: start: 19990515, end: 19991218

REACTIONS (3)
  - DRUG EXPOSURE DURING PREGNANCY [None]
  - DRUG INEFFECTIVE [None]
  - VIRAL MUTATION IDENTIFIED [None]
